FAERS Safety Report 8765161 (Version 4)
Quarter: 2012Q4

REPORT INFORMATION
  Report Type: 
  Country: PL (occurrence: PL)
  Receive Date: 20120903
  Receipt Date: 20121108
  Transmission Date: 20130627
  Serious: Yes (Hospitalization, Other)
  Sender: FDA-Public Use
  Company Number: PL-AMGEN-POLSP2012055067

PATIENT
  Age: 71 Year
  Sex: Female
  Weight: 51 kg

DRUGS (4)
  1. NEULASTA [Suspect]
     Indication: CHEMOTHERAPY
     Dosage: 6 mg, per chemo regim
     Route: 058
     Dates: start: 20120818, end: 20120819
  2. TOPOTECAN [Concomitant]
  3. ONDANSETRON [Concomitant]
  4. LORIEN [Concomitant]

REACTIONS (5)
  - Febrile neutropenia [Recovered/Resolved]
  - Escherichia bacteraemia [Recovered/Resolved]
  - Anal infection [Recovered/Resolved]
  - Haemorrhoids [Recovered/Resolved]
  - Anal fissure [Recovered/Resolved]
